FAERS Safety Report 5846573-3 (Version None)
Quarter: 2008Q3

REPORT INFORMATION
  Report Type: 
  Country: None (occurrence: None)
  Receive Date: 20080815
  Receipt Date: 20080806
  Transmission Date: 20090109
  Serious: Yes (Other)
  Sender: FDA-Public Use
  Company Number: ZA-JNJFOC-20080604698

PATIENT
  Age: 83 Year
  Sex: Female

DRUGS (2)
  1. RISPERDAL [Suspect]
     Dosage: AT NIGHT
     Route: 048
  2. RISPERDAL [Suspect]
     Indication: FEELING OF RELAXATION
     Route: 048

REACTIONS (2)
  - COGNITIVE DISORDER [None]
  - CONFUSIONAL STATE [None]
